FAERS Safety Report 21171496 (Version 1)
Quarter: 2022Q3

REPORT INFORMATION
  Report Type: Report from Study
  Country: KR (occurrence: KR)
  Receive Date: 20220804
  Receipt Date: 20220804
  Transmission Date: 20221027
  Serious: Yes (Other)
  Sender: FDA-Public Use
  Company Number: KR-PFIZER INC-202201019143

PATIENT

DRUGS (1)
  1. VANCOMYCIN HYDROCHLORIDE [Suspect]
     Active Substance: VANCOMYCIN HYDROCHLORIDE
     Indication: Pneumonia staphylococcal
     Dosage: 15 MG/KG, 2X/DAY (THE DOSE OF THE DRUGS WAS CHANGED TARGETING TROUGH LEVELS OF 15-20 UG/ML)

REACTIONS (1)
  - Azotaemia [Not Recovered/Not Resolved]
